FAERS Safety Report 9419514 (Version 1)
Quarter: 2013Q3

REPORT INFORMATION
  Report Type: Spontaneous
  Country: GB (occurrence: GB)
  Receive Date: 20130725
  Receipt Date: 20130725
  Transmission Date: 20140515
  Serious: Yes (Life-Threatening, Hospitalization)
  Sender: FDA-Public Use
  Company Number: GB-PFIZER INC-2013213985

PATIENT
  Age: 67 Year
  Sex: Female

DRUGS (11)
  1. RAMIPRIL [Suspect]
     Indication: HYPERTENSION
     Dosage: 5 MG, DAILY
     Route: 048
     Dates: start: 2011, end: 20130618
  2. CARBIMAZOLE [Suspect]
     Indication: HYPERTHYROIDISM
     Dosage: 20 MG, DAILY
     Route: 048
     Dates: start: 201304, end: 20130620
  3. ADCAL-D3 [Concomitant]
     Dosage: UNK
  4. CLOPIDOGREL [Concomitant]
     Dosage: UNK
  5. MODAFINIL [Concomitant]
     Dosage: UNK
  6. NICORANDIL [Concomitant]
     Dosage: UNK
  7. SIMVASTATIN [Concomitant]
     Dosage: UNK
  8. CLOMIPRAMINE [Concomitant]
     Dosage: UNK
  9. LANSOPRAZOLE [Concomitant]
     Dosage: UNK
  10. BISOPROLOL [Concomitant]
     Dosage: UNK
  11. OMACOR [Concomitant]
     Dosage: UNK

REACTIONS (2)
  - Angioedema [Recovered/Resolved]
  - Oedema mouth [Recovered/Resolved]
